FAERS Safety Report 7325062-3 (Version None)
Quarter: 2011Q1

REPORT INFORMATION
  Report Type: 
  Country: None (occurrence: None)
  Receive Date: 20110302
  Receipt Date: 20110217
  Transmission Date: 20110831
  Serious: Yes (Other)
  Sender: FDA-Public Use
  Company Number: US-RB-021706-11

PATIENT
  Age: 76 Year
  Sex: Male

DRUGS (1)
  1. MUCINEX DM [Suspect]
     Dosage: PATIENT HAS TAKEN PRODUCT ON SUNDAY, MONDAY, TUESDAY + WEDNESDAY
     Route: 048

REACTIONS (2)
  - HAEMATOCHEZIA [None]
  - GASTROINTESTINAL ULCER HAEMORRHAGE [None]
